FAERS Safety Report 10640435 (Version 2)
Quarter: 2014Q4

REPORT INFORMATION
  Report Type: Spontaneous
  Country: US (occurrence: US)
  Receive Date: 20141209
  Receipt Date: 20141209
  Transmission Date: 20150529
  Serious: No
  Sender: FDA-Public Use
  Company Number: US-TEVA-467306USA

PATIENT
  Age: 15 Year
  Sex: Male
  Weight: 82.7 kg

DRUGS (8)
  1. ZOLOFT [Concomitant]
     Active Substance: SERTRALINE HYDROCHLORIDE
     Dosage: 150 MILLIGRAM DAILY;
  2. CLOZAPINE. [Suspect]
     Active Substance: CLOZAPINE
     Indication: AUTISM
  3. PROVIGIL [Concomitant]
     Active Substance: MODAFINIL
     Dosage: 200 MILLIGRAM DAILY;
  4. CLOZAPINE. [Suspect]
     Active Substance: CLOZAPINE
     Indication: BIPOLAR DISORDER
     Dosage: 100 MILLIGRAM DAILY; 8PM
     Dates: start: 20130507, end: 20140305
  5. PINDOLOL. [Concomitant]
     Active Substance: PINDOLOL
     Dosage: 20 MILLIGRAM DAILY;
  6. CLOZAPINE. [Suspect]
     Active Substance: CLOZAPINE
     Indication: PSYCHOTIC DISORDER
     Dosage: 300 MILLIGRAM DAILY; 8AM AND 2PM
     Dates: start: 20130507, end: 20140305
  7. COGENTIN [Concomitant]
     Active Substance: BENZTROPINE MESYLATE
     Dosage: 2 MILLIGRAM DAILY;
  8. COLACE [Concomitant]
     Active Substance: DOCUSATE SODIUM
     Dosage: 200 MILLIGRAM DAILY;

REACTIONS (6)
  - Lymphocyte count decreased [Recovering/Resolving]
  - Pyrexia [Recovering/Resolving]
  - Gastroenteritis viral [Unknown]
  - Oropharyngeal pain [Recovering/Resolving]
  - Throat irritation [Unknown]
  - Chills [Unknown]

NARRATIVE: CASE EVENT DATE: 20140302
